FAERS Safety Report 9469497 (Version 3)
Quarter: 2014Q2

REPORT INFORMATION
  Report Type: Spontaneous
  Country: BR (occurrence: BR)
  Receive Date: 20130822
  Receipt Date: 20140613
  Transmission Date: 20141212
  Serious: Yes (Hospitalization)
  Sender: FDA-Public Use
  Company Number: BR-BIOGENIDEC-2013BI078460

PATIENT
  Age: 39 Year
  Sex: Female

DRUGS (6)
  1. AVONEX [Suspect]
     Indication: MULTIPLE SCLEROSIS
     Route: 030
     Dates: start: 20100108, end: 20130521
  2. AVONEX [Suspect]
     Indication: MULTIPLE SCLEROSIS
     Route: 030
     Dates: start: 20130528
  3. VENLAFAXINE HYDROCHLORIDE [Concomitant]
     Indication: DEPRESSION
     Dates: start: 200902
  4. LORAX [Concomitant]
     Indication: INSOMNIA
     Dates: start: 200902
  5. GLIFAGE [Concomitant]
     Indication: DIABETES MELLITUS
     Dates: start: 200902
  6. DIMINUTE (GESTODENE AND ETHINYLESTRADIOL) [Concomitant]
     Indication: CONTRACEPTION

REACTIONS (12)
  - Balance disorder [Not Recovered/Not Resolved]
  - Intervertebral disc protrusion [Recovered/Resolved]
  - Exostosis [Recovered/Resolved]
  - Blood pressure increased [Unknown]
  - Heart rate decreased [Unknown]
  - Multiple sclerosis relapse [Not Recovered/Not Resolved]
  - Paraesthesia [Not Recovered/Not Resolved]
  - Arthralgia [Not Recovered/Not Resolved]
  - Headache [Unknown]
  - Vision blurred [Recovered/Resolved]
  - Blood pressure decreased [Recovered/Resolved]
  - Malaise [Recovered/Resolved]
